FAERS Safety Report 10046027 (Version 3)
Quarter: 2014Q4

REPORT INFORMATION
  Report Type: Report from Study
  Country: IN (occurrence: IN)
  Receive Date: 20140331
  Receipt Date: 20141125
  Transmission Date: 20150528
  Serious: Yes (Hospitalization)
  Sender: FDA-Public Use
  Company Number: IN-AMGEN-INDCT2014022204

PATIENT
  Age: 51 Year
  Sex: Female

DRUGS (24)
  1. RAZO [Concomitant]
     Dosage: 20 MG, 1X/DAY
     Route: 048
     Dates: start: 20120814
  2. AVIL                               /00085103/ [Concomitant]
     Indication: ABSCESS RUPTURE
     Dosage: 1 AMPOULE SINGLE DOSE
     Route: 042
     Dates: start: 20130913, end: 20130913
  3. AVIL                               /00085103/ [Concomitant]
     Dosage: 1 AMPOULE SINGLE DOSE
     Route: 042
     Dates: start: 20130917, end: 20130917
  4. AMIKACIN [Concomitant]
     Active Substance: AMIKACIN
     Indication: ABSCESS RUPTURE
     Dosage: 750 MG, DAILY
     Route: 042
     Dates: start: 20130918, end: 20130924
  5. METHOTREXATE [Concomitant]
     Active Substance: METHOTREXATE
     Dosage: 15 MG, WEEKLY
     Route: 048
     Dates: start: 20120102, end: 20120603
  6. NUCOXIA [Concomitant]
     Active Substance: ETORICOXIB
     Dosage: 1 IN 1 D
     Route: 048
     Dates: start: 20140308
  7. DEPO-MEDROL [Concomitant]
     Active Substance: METHYLPREDNISOLONE ACETATE
     Dosage: 20 MG, UNK
     Dates: start: 20120404, end: 20120405
  8. FRAGMIN [Concomitant]
     Active Substance: DALTEPARIN SODIUM
     Indication: ABSCESS RUPTURE
     Dosage: 2500 UNIT, QD
     Route: 058
     Dates: start: 20130914, end: 20130921
  9. ETANERCEPT [Suspect]
     Active Substance: ETANERCEPT
     Dosage: 50 MG, QWK
     Route: 058
     Dates: start: 20130415
  10. NUCOXIA [Concomitant]
     Active Substance: ETORICOXIB
     Dosage: 60 MG, AS NEEDED
     Dates: start: 20130111
  11. ETANERCEPT [Suspect]
     Active Substance: ETANERCEPT
     Indication: RHEUMATOID ARTHRITIS
     Dosage: 50 MG, QWK
     Route: 058
     Dates: start: 20121017
  12. HYDROXYCHLOROQUINE [Concomitant]
     Active Substance: HYDROXYCHLOROQUINE
     Indication: RHEUMATOID ARTHRITIS
     Dosage: 200 MG, 2X/DAY
     Route: 048
     Dates: start: 20110726
  13. EMESET [Concomitant]
     Indication: ABSCESS RUPTURE
     Dosage: 4 MG, 3X/DAY
     Route: 042
     Dates: start: 20140730, end: 20140730
  14. METHOTREXATE [Concomitant]
     Active Substance: METHOTREXATE
     Indication: RHEUMATOID ARTHRITIS
     Dosage: 10 MG, WEEKLY
     Route: 048
     Dates: start: 20110726, end: 20120101
  15. METHOTREXATE [Concomitant]
     Active Substance: METHOTREXATE
     Dosage: 20 MG, QWK
     Route: 048
     Dates: start: 20120604
  16. NUCOXIA [Concomitant]
     Active Substance: ETORICOXIB
     Dosage: 60 MG, BID
     Route: 048
     Dates: start: 20111128
  17. NUCOXIA [Concomitant]
     Active Substance: ETORICOXIB
     Dosage: 60 MG, 1X/DAY
     Route: 048
     Dates: start: 20140526
  18. CEFTUM                             /00454602/ [Concomitant]
     Indication: ABSCESS RUPTURE
     Dosage: 500 MG, 2X/DAY
     Route: 048
     Dates: start: 20140804, end: 20140806
  19. FOLIC ACID. [Concomitant]
     Active Substance: FOLIC ACID
     Dosage: 5 MG, WEEKLY
     Route: 048
     Dates: start: 20110726
  20. SUPACEF                            /00454602/ [Concomitant]
     Indication: ABSCESS RUPTURE
     Dosage: 1.5 G, 3X/DAY
     Route: 042
     Dates: start: 20140802, end: 20140803
  21. PAN [Concomitant]
     Indication: ABSCESS RUPTURE
     Dosage: 40 MG, 1X/DAY
     Route: 048
     Dates: start: 20140730, end: 20140811
  22. FRAGMIN [Concomitant]
     Active Substance: DALTEPARIN SODIUM
     Dosage: 2500 UNIT DALIY (1 IN 1 D)
     Route: 058
     Dates: start: 20140731, end: 20140805
  23. DOLO                               /00020001/ [Concomitant]
     Indication: ABSCESS RUPTURE
     Dosage: 65 MG, 3X/DAY
     Route: 048
     Dates: start: 20140801, end: 20140808
  24. FESOVIT                            /00508001/ [Concomitant]
     Dosage: UNK

REACTIONS (1)
  - Anal fistula [Recovered/Resolved]

NARRATIVE: CASE EVENT DATE: 20140303
